FAERS Safety Report 15595890 (Version 1)
Quarter: 2018Q4

REPORT INFORMATION
  Report Type: Spontaneous
  Country: GB (occurrence: GB)
  Receive Date: 20181107
  Receipt Date: 20181107
  Transmission Date: 20190205
  Serious: Yes (Hospitalization, Other)
  Sender: FDA-Public Use
  Company Number: GB-TEVA-150598ISR

PATIENT
  Sex: Male
  Weight: 68.2 kg

DRUGS (2)
  1. METRONIDAZOLE. [Suspect]
     Active Substance: METRONIDAZOLE
     Route: 054
     Dates: start: 20050601, end: 20050601
  2. CIPROFLOXACIN HYDROCHLORIDE (WATSON LABORATORIES) [Suspect]
     Active Substance: CIPROFLOXACIN HYDROCHLORIDE
     Indication: PRODUCT USED FOR UNKNOWN INDICATION
     Dosage: 750 MILLIGRAM DAILY;
     Route: 048
     Dates: start: 20050601, end: 20050603

REACTIONS (2)
  - Colitis [Unknown]
  - Colitis ulcerative [Not Recovered/Not Resolved]

NARRATIVE: CASE EVENT DATE: 20050609
